FAERS Safety Report 8457956 (Version 2)
Quarter: 2013Q1

REPORT INFORMATION
  Report Type: Spontaneous
  Country: US (occurrence: US)
  Receive Date: 20120314
  Receipt Date: 20130328
  Transmission Date: 20140127
  Serious: No
  Sender: FDA-Public Use
  Company Number: US-MYLANLABS-2011S1025996

PATIENT
  Age: 59 Year
  Sex: Female
  Weight: 65.77 kg

DRUGS (4)
  1. VERAPAMIL [Suspect]
     Indication: HYPERTENSION
     Route: 048
     Dates: end: 20111219
  2. POTASSIUM CHLORIDE [Suspect]
     Indication: MINERAL SUPPLEMENTATION
     Route: 048
     Dates: end: 20111219
  3. PRAVASTATIN [Concomitant]
  4. TRIAMTERENE/HCTZ [Concomitant]
     Dosage: 75MG/50MG

REACTIONS (6)
  - Chest discomfort [Recovered/Resolved]
  - Asthenia [Recovered/Resolved]
  - Dyspepsia [Recovered/Resolved]
  - Dry mouth [Recovered/Resolved]
  - Constipation [Recovered/Resolved]
  - Body temperature increased [Recovered/Resolved]
